FAERS Safety Report 4757769-6 (Version None)
Quarter: 2005Q3

REPORT INFORMATION
  Report Type: 
  Country: None (occurrence: None)
  Receive Date: 20050831
  Receipt Date: 20050823
  Transmission Date: 20060218
  Serious: Yes (Hospitalization)
  Sender: FDA-Public Use
  Company Number: US-BRISTOL-MYERS SQUIBB COMPANY-13087705

PATIENT
  Age: 82 Year
  Sex: Female
  Weight: 49 kg

DRUGS (7)
  1. COUMADIN [Suspect]
     Indication: CARDIAC PACEMAKER INSERTION
     Dosage: ON VARYING DOSE;CURRENTLY ON 4MG X 3 DAYS + 3 MG X 5 DAYS
     Route: 048
     Dates: start: 19971001
  2. COUMADIN [Suspect]
     Indication: CARDIAC ARREST
     Dosage: ON VARYING DOSE;CURRENTLY ON 4MG X 3 DAYS + 3 MG X 5 DAYS
     Route: 048
     Dates: start: 19971001
  3. CORTISONE ACETATE TAB [Suspect]
     Dosage: VIA INJECTION
     Route: 051
  4. POTASSIUM [Concomitant]
     Dosage: 3 TSP QD
  5. AVAPRO [Concomitant]
  6. LANOXIN [Concomitant]
  7. THYROID TAB [Concomitant]

REACTIONS (3)
  - BODY HEIGHT DECREASED [None]
  - DYSPNOEA [None]
  - TACHYCARDIA [None]
